FAERS Safety Report 4685165-9 (Version None)
Quarter: 2005Q2

REPORT INFORMATION
  Report Type: 
  Country: None (occurrence: None)
  Receive Date: 20050608
  Receipt Date: 20050602
  Transmission Date: 20051028
  Serious: Yes (Other)
  Sender: FDA-Public Use
  Company Number: 200515060GDDC

PATIENT
  Age: 62 Year
  Sex: Male
  Weight: 85 kg

DRUGS (8)
  1. DILTIAZEM [Suspect]
     Indication: MYOCARDIAL ISCHAEMIA
  2. FRUSEMIDE [Suspect]
     Indication: CARDIAC FAILURE CONGESTIVE
  3. METFORMIN HCL [Suspect]
     Indication: DIABETES MELLITUS
  4. AMIODARONE HYDROCHLORIDE [Suspect]
     Indication: CARDIAC DISORDER
  5. PERHEXILINE MALEATE [Suspect]
     Indication: MYOCARDIAL ISCHAEMIA
  6. ISOSORBIDE DINITRATE [Suspect]
     Indication: MYOCARDIAL ISCHAEMIA
  7. SPIRONOLACTONE [Suspect]
     Indication: CARDIAC FAILURE CONGESTIVE
  8. ASPIRIN [Suspect]
     Indication: MYOCARDIAL ISCHAEMIA

REACTIONS (4)
  - HEPATIC CIRRHOSIS [None]
  - HEPATIC FAILURE [None]
  - HEPATIC FIBROSIS [None]
  - HEPATIC NECROSIS [None]
